FAERS Safety Report 15038304 (Version 2)
Quarter: 2018Q3

REPORT INFORMATION
  Report Type: Spontaneous
  Country: US (occurrence: US)
  Receive Date: 20180620
  Receipt Date: 20180913
  Transmission Date: 20181010
  Serious: No
  Sender: FDA-Public Use
  Company Number: US-B.I. PHARMACEUTICALS,INC./RIDGEFIELD-2018-BI-030521

PATIENT
  Age: 53 Year
  Sex: Female

DRUGS (2)
  1. JARDIANCE [Suspect]
     Active Substance: EMPAGLIFLOZIN
     Route: 065
     Dates: start: 2015, end: 201803
  2. JARDIANCE [Suspect]
     Active Substance: EMPAGLIFLOZIN
     Indication: TYPE 2 DIABETES MELLITUS
     Dosage: ADMINISTRATION CORRECT? NR(NOT REPORTED)
     Route: 065
     Dates: start: 2014

REACTIONS (5)
  - General physical health deterioration [Unknown]
  - Dyspnoea exertional [Unknown]
  - Weight increased [Unknown]
  - Oedema [Unknown]
  - Fatigue [Unknown]

NARRATIVE: CASE EVENT DATE: 201803
